FAERS Safety Report 16006667 (Version 1)
Quarter: 2019Q1

REPORT INFORMATION
  Report Type: Spontaneous
  Country: US (occurrence: US)
  Receive Date: 20190225
  Receipt Date: 20190225
  Transmission Date: 20190418
  Serious: No
  Sender: FDA-Public Use
  Company Number: US-TEVA-2019-US-1008226

PATIENT
  Age: 80 Year
  Sex: Male

DRUGS (2)
  1. GLIBENCLAMIDE TEVA [Suspect]
     Active Substance: GLYBURIDE
     Dates: start: 20181213
  2. GLIBENCLAMIDE TEVA [Suspect]
     Active Substance: GLYBURIDE
     Indication: HYPERGLYCAEMIA
     Dates: start: 200909

REACTIONS (2)
  - Blood glucose increased [Unknown]
  - Drug ineffective [Unknown]

NARRATIVE: CASE EVENT DATE: 20190120
